FAERS Safety Report 5106449-6 (Version None)
Quarter: 2006Q3

REPORT INFORMATION
  Report Type: 
  Country: None (occurrence: None)
  Receive Date: 20060918
  Receipt Date: 20060908
  Transmission Date: 20061208
  Serious: Yes (Hospitalization)
  Sender: FDA-Public Use
  Company Number: FR-ROCHE-462531

PATIENT
  Age: 61 Year
  Sex: Female

DRUGS (4)
  1. PEGASYS [Suspect]
     Indication: DRUG USE FOR UNKNOWN INDICATION
     Route: 058
     Dates: start: 20040315, end: 20050315
  2. PEGASYS [Suspect]
     Dosage: DOSAGE REPORTED AS 180.
     Route: 058
     Dates: start: 20060619
  3. COPEGUS [Suspect]
     Indication: DRUG USE FOR UNKNOWN INDICATION
     Route: 048
     Dates: start: 20040315, end: 20050315
  4. COPEGUS [Suspect]
     Dosage: TWO DOSES IN THE MORNING AND THREE DOSES IN THE EVENING.
     Route: 048
     Dates: start: 20060619

REACTIONS (6)
  - ARTHRALGIA [None]
  - BONE INFARCTION [None]
  - COAGULATION FACTOR VIII LEVEL INCREASED [None]
  - FALL [None]
  - GAIT DISTURBANCE [None]
  - OSTEONECROSIS [None]
